FAERS Safety Report 23963751 (Version 1)
Quarter: 2024Q2

REPORT INFORMATION
  Report Type: Spontaneous
  Country: US (occurrence: US)
  Receive Date: 20240611
  Receipt Date: 20240611
  Transmission Date: 20240716
  Serious: No
  Sender: FDA-Public Use
  Company Number: US-RIGEL Pharmaceuticals, INC-2023FOS000415

PATIENT
  Age: 20 Year
  Sex: Male
  Weight: 95.238 kg

DRUGS (4)
  1. TAVALISSE [Suspect]
     Active Substance: FOSTAMATINIB
     Indication: Immune thrombocytopenia
     Dosage: 100 MILLIGRAM, BID
     Route: 048
     Dates: start: 20230405
  2. PAPAYA [Concomitant]
     Active Substance: PAPAYA
     Indication: Product used for unknown indication
     Dosage: UNK
     Route: 048
  3. PREDNISONE [Concomitant]
     Active Substance: PREDNISONE
     Indication: Product used for unknown indication
     Dosage: 30 MG, QD
     Route: 065
  4. TONGKAT ALI [EPIMEDIUM SPP.;EURYCOMA LONGIFOLIA;LEPIDIUM MEYENII ROOT; [Concomitant]
     Indication: Product used for unknown indication
     Route: 065

REACTIONS (2)
  - Epistaxis [Recovered/Resolved]
  - Blood pressure increased [Unknown]

NARRATIVE: CASE EVENT DATE: 20230401
